FAERS Safety Report 15083249 (Version 1)
Quarter: 2018Q2

REPORT INFORMATION
  Report Type: Spontaneous
  Country: CA (occurrence: CA)
  Receive Date: 20180628
  Receipt Date: 20180628
  Transmission Date: 20180711
  Serious: Yes (Other)
  Sender: FDA-Public Use
  Company Number: CA-ALLERGAN-1832499US

PATIENT
  Sex: Male

DRUGS (1)
  1. LUMIGAN [Suspect]
     Active Substance: BIMATOPROST
     Indication: PRODUCT USED FOR UNKNOWN INDICATION
     Dosage: 1 GTT, QHS
     Route: 047
     Dates: start: 201805

REACTIONS (8)
  - Impaired healing [Unknown]
  - Corneal epithelium defect [Unknown]
  - Punctate keratitis [Unknown]
  - Corneal oedema [Unknown]
  - Ocular hyperaemia [Unknown]
  - Product quality issue [Unknown]
  - Keratitis [Unknown]
  - Blepharitis [Unknown]
